FAERS Safety Report 22298388 (Version 1)
Quarter: 2023Q2

REPORT INFORMATION
  Report Type: Spontaneous
  Country: US (occurrence: US)
  Receive Date: 20230509
  Receipt Date: 20230509
  Transmission Date: 20230721
  Serious: Yes (Other)
  Sender: FDA-Public Use
  Company Number: US-AMGEN-USASP2023076023

PATIENT
  Age: 69 Year
  Sex: Male

DRUGS (2)
  1. ENBREL [Suspect]
     Active Substance: ETANERCEPT
     Indication: Psoriatic arthropathy
     Dosage: UNK
     Route: 065
  2. OTEZLA [Suspect]
     Active Substance: APREMILAST
     Indication: Psoriatic arthropathy
     Dosage: 30 MILLIGRAM, BID
     Route: 065
     Dates: start: 20230201

REACTIONS (5)
  - Cerebrovascular accident [Unknown]
  - Non-small cell lung cancer stage IV [Not Recovered/Not Resolved]
  - Latent tuberculosis [Unknown]
  - Drug ineffective [Unknown]
  - Skin plaque [Unknown]

NARRATIVE: CASE EVENT DATE: 20230101
